FAERS Safety Report 12587474 (Version 1)
Quarter: 2016Q3

REPORT INFORMATION
  Report Type: Spontaneous
  Country: PT (occurrence: PT)
  Receive Date: 20160725
  Receipt Date: 20160725
  Transmission Date: 20161109
  Serious: Yes (Hospitalization, Other)
  Sender: FDA-Public Use
  Company Number: PT-PFIZER INC-2016345994

PATIENT
  Age: 64 Year
  Sex: Male

DRUGS (2)
  1. SALAZOPIRINA EN [Suspect]
     Active Substance: SULFASALAZINE
     Dosage: 1 DF, 1X/DAY
     Dates: start: 20150630, end: 20160115
  2. HYDROXYCHLOROQUINE [Interacting]
     Active Substance: HYDROXYCHLOROQUINE
     Dosage: 1 DF, 1X/DAY

REACTIONS (2)
  - Drug interaction [Recovering/Resolving]
  - Pancytopenia [Recovering/Resolving]

NARRATIVE: CASE EVENT DATE: 20160115
